FAERS Safety Report 5791181-6 (Version None)
Quarter: 2008Q2

REPORT INFORMATION
  Report Type: 
  Country: None (occurrence: None)
  Receive Date: 20080626
  Receipt Date: 20080228
  Transmission Date: 20081010
  Serious: No
  Sender: FDA-Public Use
  Company Number: A0712364A

PATIENT
  Age: 19 Year
  Sex: Female

DRUGS (1)
  1. ALLI [Suspect]
     Dates: start: 20080226, end: 20080227

REACTIONS (4)
  - MALAISE [None]
  - NAUSEA [None]
  - RETCHING [None]
  - VOMITING [None]
